FAERS Safety Report 5313956-X (Version None)
Quarter: 2007Q2

REPORT INFORMATION
  Report Type: 
  Country: None (occurrence: None)
  Receive Date: 20070501
  Receipt Date: 20070419
  Transmission Date: 20071010
  Serious: Yes (Hospitalization, Other)
  Sender: FDA-Public Use
  Company Number: US-PFIZER INC-2007031970

PATIENT
  Sex: Female
  Weight: 50.909 kg

DRUGS (1)
  1. NEURONTIN [Suspect]
     Indication: BACK DISORDER
     Dates: start: 19990101

REACTIONS (14)
  - ANXIETY [None]
  - BRONCHITIS CHRONIC [None]
  - CARDIAC PACEMAKER INSERTION [None]
  - CHRONIC OBSTRUCTIVE PULMONARY DISEASE [None]
  - COMA [None]
  - CORONARY ARTERY DISEASE [None]
  - DEPRESSION [None]
  - FALL [None]
  - INJURY [None]
  - KNEE ARTHROPLASTY [None]
  - MYOCARDIAL INFARCTION [None]
  - PNEUMONIA [None]
  - STAPHYLOCOCCAL INFECTION [None]
  - STENT PLACEMENT [None]
